FAERS Safety Report 12126996 (Version 3)
Quarter: 2019Q1

REPORT INFORMATION
  Report Type: Spontaneous
  Country: FR (occurrence: FR)
  Receive Date: 20160229
  Receipt Date: 20190121
  Transmission Date: 20190417
  Serious: Yes (Hospitalization, Other)
  Sender: FDA-Public Use
  Company Number: FR-SA-2016SA034910

PATIENT
  Age: 63 Year
  Sex: Female

DRUGS (6)
  1. DOCETAXEL. [Suspect]
     Active Substance: DOCETAXEL
     Indication: BREAST CANCER FEMALE
     Dosage: 100 MG/M2, QCY
  2. 5 FU [Concomitant]
     Active Substance: FLUOROURACIL
     Dosage: 4 DF,UNK
     Route: 042
     Dates: start: 201508
  3. DOCETAXEL. [Suspect]
     Active Substance: DOCETAXEL
     Dosage: .0476 DF,UNK
     Route: 042
     Dates: start: 20151124, end: 20151215
  4. CYCLOPHOSPHAMIDE. [Concomitant]
     Active Substance: CYCLOPHOSPHAMIDE
     Dosage: 4 DF,UNK
     Route: 042
     Dates: start: 201508
  5. DOCETAXEL. [Suspect]
     Active Substance: DOCETAXEL
     Dosage: 100 MG/M2, QCY
  6. FARMORUBICINE [Concomitant]
     Active Substance: EPIRUBICIN HYDROCHLORIDE
     Dosage: 4 DF,UNK
     Route: 042
     Dates: start: 201508

REACTIONS (8)
  - Skin lesion [Recovered/Resolved]
  - Dermatitis exfoliative generalised [Recovered/Resolved]
  - Inflammation [Recovered/Resolved]
  - Acute generalised exanthematous pustulosis [Recovered/Resolved]
  - Staphylococcal impetigo [Recovered/Resolved]
  - Erythema [Recovered/Resolved]
  - Eyelid oedema [Recovered/Resolved]
  - Rash pustular [Recovered/Resolved]

NARRATIVE: CASE EVENT DATE: 201512
